FAERS Safety Report 6403788-3 (Version None)
Quarter: 2009Q4

REPORT INFORMATION
  Report Type: 
  Country: None (occurrence: None)
  Receive Date: 20091015
  Receipt Date: 20091015
  Transmission Date: 20100525
  Serious: Yes (Hospitalization)
  Sender: FDA-Public Use
  Company Number: None

PATIENT
  Sex: Male
  Weight: 25.9 kg

DRUGS (6)
  1. CYCLOPHOSPHAMIDE [Suspect]
     Dosage: 2000 MG
  2. CYTARABINE [Suspect]
     Dosage: 1200 MG
  3. MERCAPTOPURINE [Suspect]
     Dosage: 1700 MG
  4. METHOTREXATE [Suspect]
     Dosage: 48 MG
  5. ONCASPAR [Suspect]
     Dosage: 2500 IU
  6. VINCRISTINE SULFATE [Suspect]
     Dosage: 3 MG

REACTIONS (14)
  - ACUTE RESPIRATORY FAILURE [None]
  - BLOOD PRESSURE DECREASED [None]
  - CARDIO-RESPIRATORY ARREST [None]
  - COUGH [None]
  - HAEMOGLOBIN DECREASED [None]
  - OXYGEN SATURATION DECREASED [None]
  - PARAINFLUENZAE VIRUS INFECTION [None]
  - PLATELET COUNT DECREASED [None]
  - POOR PERIPHERAL CIRCULATION [None]
  - PYREXIA [None]
  - RESPIRATORY DISTRESS [None]
  - RESPIRATORY SYNCYTIAL VIRUS INFECTION [None]
  - RHINORRHOEA [None]
  - WHITE BLOOD CELL COUNT DECREASED [None]
